FAERS Safety Report 11931354 (Version 1)
Quarter: 2016Q1

REPORT INFORMATION
  Report Type: Spontaneous
  Country: US (occurrence: US)
  Receive Date: 20160120
  Receipt Date: 20160120
  Transmission Date: 20160526
  Serious: No
  Sender: FDA-Public Use
  Company Number: US-INCYTE CORPORATION-2015IN005363

PATIENT
  Sex: Female

DRUGS (4)
  1. HYDREA [Suspect]
     Active Substance: HYDROXYUREA
  2. ANAGRELIDE [Concomitant]
     Active Substance: ANAGRELIDE
  3. JAKAFI [Suspect]
     Active Substance: RUXOLITINIB
     Indication: POLYCYTHAEMIA VERA
     Dosage: 5 MG, QD
     Route: 048
     Dates: start: 2015, end: 20150928
  4. ASPIRIN. [Concomitant]
     Active Substance: ASPIRIN

REACTIONS (5)
  - Pain [Unknown]
  - Drug ineffective [Unknown]
  - Muscle spasms [Unknown]
  - Myalgia [Unknown]
  - Dizziness [Unknown]
